FAERS Safety Report 8844342 (Version 2)
Quarter: 2012Q4

REPORT INFORMATION
  Report Type: 
  Country: US (occurrence: None)
  Receive Date: 20121017
  Receipt Date: 20121018
  Transmission Date: 20130627
  Serious: Yes (Other)
  Sender: FDA-Public Use
  Company Number: None

PATIENT
  Age: 39 Year
  Sex: Female
  Weight: 56.7 kg

DRUGS (2)
  1. BETAMETHASONE [Suspect]
     Indication: RADICULITIS
     Dates: start: 20120919, end: 20120919
  2. BETAMETHASONE [Suspect]
     Indication: LUMBAR DISC HERNIATION
     Dates: start: 20120919, end: 20120919

REACTIONS (1)
  - Sinusitis [None]
